FAERS Safety Report 8558231-5 (Version None)
Quarter: 2012Q3

REPORT INFORMATION
  Report Type: 
  Country: None (occurrence: None)
  Receive Date: 20120801
  Receipt Date: 20120724
  Transmission Date: 20120928
  Serious: Yes (Hospitalization)
  Sender: FDA-Public Use
  Company Number: PHHY2012IT064857

PATIENT
  Sex: Male

DRUGS (5)
  1. ALPRAZOLAM [Suspect]
     Dosage: 7.5 MG
     Route: 048
     Dates: start: 20120517, end: 20120517
  2. ACTIVATED COAL [Concomitant]
     Dosage: 50 MG
  3. ZOLPIDEM TARTRATE [Suspect]
     Dosage: 50 MG,
     Route: 048
     Dates: start: 20120517, end: 20120517
  4. SERTRALINE HYDROCHLORIDE [Suspect]
     Dosage: 6000 MG
     Route: 048
     Dates: start: 20120517, end: 20120517
  5. ALCOHOL [Suspect]

REACTIONS (4)
  - SELF INJURIOUS BEHAVIOUR [None]
  - DRUG LEVEL INCREASED [None]
  - IMPULSIVE BEHAVIOUR [None]
  - VOMITING [None]
